FAERS Safety Report 13284923 (Version 1)
Quarter: 2017Q1

REPORT INFORMATION
  Report Type: Spontaneous
  Country: US (occurrence: US)
  Receive Date: 20170301
  Receipt Date: 20170301
  Transmission Date: 20170428
  Serious: Yes (Other)
  Sender: FDA-Public Use
  Company Number: None

PATIENT
  Age: 68 Year
  Sex: Male
  Weight: 68.85 kg

DRUGS (19)
  1. ROPINIROLE. [Concomitant]
     Active Substance: ROPINIROLE
  2. ALPRAZOLAM. [Concomitant]
     Active Substance: ALPRAZOLAM
  3. TESTOSTERONE CIPIONATE [Concomitant]
     Active Substance: TESTOSTERONE
  4. AMOXICILLIN. [Concomitant]
     Active Substance: AMOXICILLIN
  5. DENAVIR [Concomitant]
     Active Substance: PENCICLOVIR
  6. CLOPIDOGREL [Concomitant]
     Active Substance: CLOPIDOGREL BISULFATE
  7. APAP/CODEINE [Concomitant]
     Active Substance: ACETAMINOPHEN\CODEINE PHOSPHATE
  8. PRALUENT [Suspect]
     Active Substance: ALIROCUMAB
     Indication: LOW DENSITY LIPOPROTEIN INCREASED
     Dosage: QUANTITY:1 INJECTION(S);OTHER FREQUENCY:1 TIME EVERY 2 WEE;OTHER ROUTE:INJ SUB Q?
     Route: 058
     Dates: start: 20161201, end: 20170205
  9. ZOLPIDEM [Concomitant]
     Active Substance: ZOLPIDEM\ZOLPIDEM TARTRATE
  10. EPZICOM [Concomitant]
     Active Substance: ABACAVIR SULFATE\LAMIVUDINE
  11. CIALIS [Concomitant]
     Active Substance: TADALAFIL
  12. TIVICAY [Concomitant]
     Active Substance: DOLUTEGRAVIR SODIUM
  13. PREZISTA [Concomitant]
     Active Substance: DARUNAVIR ETHANOLATE
  14. NORVIR [Concomitant]
     Active Substance: RITONAVIR
  15. ASPIRIN. [Concomitant]
     Active Substance: ASPIRIN
  16. MARINE D3 [Concomitant]
  17. MCT OIL [Concomitant]
  18. CILOSTAZOL. [Concomitant]
     Active Substance: CILOSTAZOL
  19. TEMEZAPAM [Concomitant]

REACTIONS (4)
  - Pain in extremity [None]
  - Back pain [None]
  - Arthralgia [None]
  - Quality of life decreased [None]

NARRATIVE: CASE EVENT DATE: 20170206
